FAERS Safety Report 7381255-0 (Version None)
Quarter: 2011Q1

REPORT INFORMATION
  Report Type: 
  Country: None (occurrence: None)
  Receive Date: 20110329
  Receipt Date: 20110321
  Transmission Date: 20110831
  Serious: Yes (Hospitalization)
  Sender: FDA-Public Use
  Company Number: US-ALEXION-A201100186

PATIENT
  Sex: Male

DRUGS (9)
  1. DESFERAL                           /00062903/ [Concomitant]
  2. RAMIPRIL [Concomitant]
     Dosage: 25 MG, QD
     Route: 048
  3. RESTORIL                           /00393701/ [Concomitant]
     Dosage: 15 MG, QD
     Route: 048
  4. FOLIC ACID [Concomitant]
     Dosage: 1 MG, QD
     Route: 048
  5. LASIX [Concomitant]
     Dosage: 20 MG, BID
     Route: 048
  6. TOPROL-XL [Concomitant]
     Dosage: 25 MG, BID
     Route: 048
  7. VITAMIN B                          /90046501/ [Concomitant]
     Dosage: 1000 UG, QD
     Route: 048
  8. SOLIRIS [Suspect]
     Indication: PAROXYSMAL NOCTURNAL HAEMOGLOBINURIA
     Dosage: 600 MG, QW
     Route: 042
     Dates: start: 20090201, end: 20090301
  9. SOLIRIS [Suspect]
     Dosage: 900 MG, Q2W
     Route: 042
     Dates: start: 20090301

REACTIONS (4)
  - CELLULITIS [None]
  - BLOOD IRON INCREASED [None]
  - BLOOD BILIRUBIN INCREASED [None]
  - HAEMOGLOBIN DECREASED [None]
